FAERS Safety Report 4700224-X (Version None)
Quarter: 2005Q2

REPORT INFORMATION
  Report Type: 
  Country: None (occurrence: None)
  Receive Date: 20050207
  Receipt Date: 20050207
  Transmission Date: 20051028
  Serious: No
  Sender: FDA-Public Use
  Company Number: None

PATIENT
  Age: 74 Year
  Sex: Female
  Weight: 126.5536 kg

DRUGS (2)
  1. METFORMIN 500MG [Suspect]
     Indication: DIABETES MELLITUS
     Dosage: 2 PO 2 AM / 1 IN PM
     Route: 048
     Dates: start: 20041001
  2. MULTIPLE MEDICATIONS [Concomitant]

REACTIONS (2)
  - SWELLING FACE [None]
  - TONGUE DISORDER [None]
